FAERS Safety Report 8915991 (Version 2)
Quarter: 2012Q4

REPORT INFORMATION
  Report Type: 
  Country: US (occurrence: US)
  Receive Date: 20121119
  Receipt Date: 20121218
  Transmission Date: 20130627
  Serious: Yes (Disabling)
  Sender: FDA-Public Use
  Company Number: US-GLAXOSMITHKLINE-A1001308A

PATIENT
  Age: 17 Year
  Sex: Female
  Weight: 76.4 kg

DRUGS (8)
  1. HORIZANT [Suspect]
     Indication: RESTLESS LEGS SYNDROME
     Dosage: 600MG Per day
     Route: 048
  2. GABAPENTIN [Suspect]
     Indication: PRODUCT USED FOR UNKNOWN INDICATION
     Route: 065
  3. UNSPECIFIED MEDICATION [Concomitant]
  4. CORTEF [Concomitant]
     Indication: FIBROMYALGIA
     Route: 048
  5. ZANAFLEX [Concomitant]
     Route: 048
  6. ARMOUR THYROID [Concomitant]
     Route: 048
  7. FLORINEF [Concomitant]
     Route: 048
  8. IRON SUPPLEMENT [Concomitant]
     Route: 048

REACTIONS (2)
  - Hallucination [Recovered/Resolved]
  - Feeling drunk [Recovered/Resolved]
